FAERS Safety Report 5802915-6 (Version None)
Quarter: 2008Q3

REPORT INFORMATION
  Report Type: 
  Country: None (occurrence: None)
  Receive Date: 20080703
  Receipt Date: 20050810
  Transmission Date: 20090109
  Serious: Yes (Other)
  Sender: FDA-Public Use
  Company Number: US023841

PATIENT
  Age: 42 Year
  Sex: Female
  Weight: 54.4316 kg

DRUGS (1)
  1. GABITRIL [Suspect]
     Indication: PAIN
     Dosage: 4 MG BID ORAL
     Route: 048
     Dates: start: 20020801

REACTIONS (2)
  - THYROID CANCER [None]
  - WEIGHT INCREASED [None]
